FAERS Safety Report 6023553-9 (Version None)
Quarter: 2008Q4

REPORT INFORMATION
  Report Type: 
  Country: None (occurrence: None)
  Receive Date: 20081230
  Receipt Date: 20081218
  Transmission Date: 20090506
  Serious: Yes (Death)
  Sender: FDA-Public Use
  Company Number: US-JNJCH-2008058008

PATIENT
  Age: 18 Year
  Sex: Female

DRUGS (2)
  1. DEXTROMETHORPHAN HYDROBROMIDE [Suspect]
     Indication: DRUG USE FOR UNKNOWN INDICATION
     Dosage: TEXT:UNSPECIFIED
     Route: 055
  2. ALL OTHER NON-THERAPEUTIC PRODUCTS [Suspect]
     Indication: DRUG USE FOR UNKNOWN INDICATION
     Dosage: TEXT:UNSPECIFIED
     Route: 055

REACTIONS (5)
  - ARTERIOSCLEROSIS [None]
  - CARDIAC ARREST [None]
  - DRUG TOXICITY [None]
  - PULMONARY OEDEMA [None]
  - UNRESPONSIVE TO STIMULI [None]
